FAERS Safety Report 8862512 (Version 3)
Quarter: 2012Q4

REPORT INFORMATION
  Report Type: 
  Country: JP (occurrence: JP)
  Receive Date: 20121026
  Receipt Date: 20121112
  Transmission Date: 20130627
  Serious: Yes (Other)
  Sender: FDA-Public Use
  Company Number: JP-JNJFOC-20121012109

PATIENT
  Age: 75 Year
  Sex: Female
  Weight: 46 kg

DRUGS (8)
  1. XARELTO [Suspect]
     Indication: CEREBROVASCULAR ACCIDENT PROPHYLAXIS
     Route: 048
     Dates: start: 20120727, end: 20120928
  2. XARELTO [Suspect]
     Indication: ATRIAL FIBRILLATION
     Route: 048
     Dates: start: 20120727, end: 20120928
  3. LIPITOR [Suspect]
     Indication: PRODUCT USED FOR UNKNOWN INDICATION
     Route: 048
     Dates: start: 20111215
  4. SUNRYTHM [Concomitant]
     Route: 048
     Dates: start: 20110112
  5. SIGMART [Concomitant]
     Route: 048
     Dates: start: 20120112
  6. MYSLEE [Concomitant]
     Route: 048
     Dates: start: 201112
  7. DIOVAN [Concomitant]
     Route: 048
     Dates: start: 20120423
  8. ATELEC [Concomitant]
     Route: 048
     Dates: start: 20120727

REACTIONS (1)
  - Lower gastrointestinal haemorrhage [Recovered/Resolved]
